FAERS Safety Report 24725159 (Version 1)
Quarter: 2024Q4

REPORT INFORMATION
  Report Type: Spontaneous
  Country: KR (occurrence: KR)
  Receive Date: 20241212
  Receipt Date: 20241212
  Transmission Date: 20250114
  Serious: Yes (Other)
  Sender: Unknown Manufacturer
  Company Number: KR-CORZA MEDICAL GMBH-2024-KR-002277

PATIENT

DRUGS (1)
  1. TACHOSIL [Suspect]
     Active Substance: FIBRINOGEN HUMAN\THROMBIN HUMAN
     Indication: Peyronie^s disease
     Dosage: UNK
     Route: 065

REACTIONS (2)
  - Erectile dysfunction [Unknown]
  - Off label use [Unknown]
